FAERS Safety Report 20925290 (Version 1)
Quarter: 2022Q2

REPORT INFORMATION
  Report Type: Spontaneous
  Country: US (occurrence: None)
  Receive Date: 20220607
  Receipt Date: 20220607
  Transmission Date: 20220721
  Serious: Yes (unspecified)
  Sender: FDA-Public Use
  Company Number: None

PATIENT
  Age: 71 Year
  Sex: Male
  Weight: 109 kg

DRUGS (1)
  1. AMIODARONE HYDROCHLORIDE [Suspect]
     Active Substance: AMIODARONE HYDROCHLORIDE
     Indication: Atrial fibrillation
     Dosage: 200 MG EVERY DAY PO
     Route: 048
     Dates: start: 20200928, end: 20220414

REACTIONS (2)
  - Pulmonary toxicity [None]
  - Dyspnoea [None]

NARRATIVE: CASE EVENT DATE: 20220414
